FAERS Safety Report 5336464-9 (Version None)
Quarter: 2007Q2

REPORT INFORMATION
  Report Type: 
  Country: None (occurrence: None)
  Receive Date: 20070524
  Receipt Date: 20070510
  Transmission Date: 20071010
  Serious: Yes (Hospitalization)
  Sender: FDA-Public Use
  Company Number: S07-FRA-02167-01

PATIENT
  Age: 57 Year
  Sex: Male

DRUGS (10)
  1. CITALOPRAM HYDROBROMIDE [Suspect]
     Dosage: 20 MG QD PO
     Route: 048
  2. ATARAX [Suspect]
     Dosage: 125 MG QD PO
     Route: 048
  3. MEPRONIZINE [Suspect]
     Dosage: 1 QD PO
     Route: 048
  4. ZYPREXA [Suspect]
     Dates: start: 20050915, end: 20060831
  5. DIAMICRON (GLICLAZIDE) [Concomitant]
  6. AMARYL [Concomitant]
  7. NEXIUM [Concomitant]
  8. DUPHALAC [Concomitant]
  9. LORAZEPAM [Concomitant]
  10. SULFARLEM (ANETHOLE TRITHIONE) [Concomitant]

REACTIONS (7)
  - AKATHISIA [None]
  - ANXIETY [None]
  - DEMENTIA [None]
  - ELECTROENCEPHALOGRAM ABNORMAL [None]
  - HYPERHIDROSIS [None]
  - MINI MENTAL STATUS EXAMINATION ABNORMAL [None]
  - TARDIVE DYSKINESIA [None]
